FAERS Safety Report 4759357-4 (Version None)
Quarter: 2005Q3

REPORT INFORMATION
  Report Type: 
  Country: None (occurrence: None)
  Receive Date: 20050826
  Receipt Date: 20050429
  Transmission Date: 20060218
  Serious: No
  Sender: FDA-Public Use
  Company Number: 212384

PATIENT
  Age: 68 Year
  Sex: Female

DRUGS (5)
  1. RAPTIVA [Suspect]
     Indication: PSORIASIS
     Dosage: 1.1 ML,1/WEEK, SUBCUTANEOUS
     Route: 058
     Dates: start: 20040601
  2. CELEBREX [Concomitant]
  3. ACETAMINOPHEN [Concomitant]
  4. VICODIN (HYDROCODONE BITARTRATE, ACETAMINOPHEN) [Concomitant]
  5. TOPICAL MEDICATION (DERMATOLOGIC AGENT NOS) [Concomitant]

REACTIONS (1)
  - ARTHRALGIA [None]
